FAERS Safety Report 4627445-9 (Version None)
Quarter: 2005Q1

REPORT INFORMATION
  Report Type: 
  Country: None (occurrence: None)
  Receive Date: 20050331
  Receipt Date: 20050318
  Transmission Date: 20050727
  Serious: Yes (Hospitalization)
  Sender: FDA-Public Use
  Company Number: 2005047595

PATIENT
  Age: 56 Year
  Sex: Male

DRUGS (5)
  1. AZITHROMYCIN [Suspect]
     Indication: UPPER RESPIRATORY TRACT INFLAMMATION
     Dosage: 500 MG, ORAL
     Route: 048
     Dates: start: 20050228
  2. REBAMIPIDE (REBAMIPIDE) [Concomitant]
  3. CHLORPHENAMINE MALEATE (CHLORPHENAMINE MALEATE) [Concomitant]
  4. GLYBURIDE [Concomitant]
  5. VOGLIBOSE (VOGLIBOSE) [Concomitant]

REACTIONS (2)
  - CONVULSION [None]
  - LOSS OF CONSCIOUSNESS [None]
